FAERS Safety Report 13192802 (Version 1)
Quarter: 2017Q1

REPORT INFORMATION
  Report Type: Report from Study
  Country: US (occurrence: US)
  Receive Date: 20170207
  Receipt Date: 20170207
  Transmission Date: 20170428
  Serious: Yes (Other)
  Sender: FDA-Public Use
  Company Number: US-MYLANLABS-2017M1006428

PATIENT

DRUGS (3)
  1. CETUXIMAB. [Concomitant]
     Active Substance: CETUXIMAB
     Dosage: 250MG/ME2, WEEKLY
     Route: 042
  2. CETUXIMAB. [Concomitant]
     Active Substance: CETUXIMAB
     Indication: LARYNGEAL SQUAMOUS CELL CARCINOMA
     Dosage: LOADING DOSE 400MG/ME2 } 4 DAYS BUT {10 DAYS BEFORE THE START OF RADIATION THERAPY
     Route: 042
  3. PACLITAXEL. [Suspect]
     Active Substance: PACLITAXEL
     Indication: LARYNGEAL SQUAMOUS CELL CARCINOMA
     Dosage: 45MG/ME2, WEEKLY (DOSE LEVEL 2)
     Route: 042

REACTIONS (1)
  - Cerebrovascular accident [Unknown]
